FAERS Safety Report 14014704 (Version 3)
Quarter: 2017Q4

REPORT INFORMATION
  Report Type: Spontaneous
  Country: US (occurrence: US)
  Receive Date: 20170927
  Receipt Date: 20171129
  Transmission Date: 20180321
  Serious: No
  Sender: FDA-Public Use
  Company Number: US-PFIZER INC-2017411236

PATIENT
  Age: 64 Year
  Sex: Male
  Weight: 108.84 kg

DRUGS (4)
  1. GABAPENTIN. [Suspect]
     Active Substance: GABAPENTIN
     Indication: NEUROPATHY PERIPHERAL
     Dosage: 1800 MG, DAILY (TWO 300MG CAPSULES, BY MOUTH, THREE TIMES PER DAY)
     Route: 048
  2. GABAPENTIN. [Suspect]
     Active Substance: GABAPENTIN
     Indication: FIBROMYALGIA
     Dosage: ONE 100MG CAPSULE, BY MOUTH, TWICE PER DAY AND 300MG AT BEDTIME)
     Route: 048
     Dates: start: 201609
  3. GABAPENTIN. [Suspect]
     Active Substance: GABAPENTIN
     Dosage: 300 MG, 3X/DAY
     Route: 048
     Dates: start: 201708
  4. GABAPENTIN. [Suspect]
     Active Substance: GABAPENTIN
     Indication: PAIN IN EXTREMITY
     Dosage: 3600 MG, UNK
     Route: 048

REACTIONS (5)
  - Tremor [Unknown]
  - Somnolence [Unknown]
  - Feeling hot [Not Recovered/Not Resolved]
  - Therapeutic response unexpected [Not Recovered/Not Resolved]
  - Drug ineffective for unapproved indication [Unknown]

NARRATIVE: CASE EVENT DATE: 201709
